FAERS Safety Report 4799213-9 (Version None)
Quarter: 2005Q4

REPORT INFORMATION
  Report Type: 
  Country: None (occurrence: None)
  Receive Date: 20051014
  Receipt Date: 20051004
  Transmission Date: 20060501
  Serious: Yes (Hospitalization, Other)
  Sender: FDA-Public Use
  Company Number: JP-MERCK-0510USA02828

PATIENT
  Age: 25 Year
  Sex: Male

DRUGS (4)
  1. TIMOPTIC [Suspect]
     Indication: INTRAOCULAR PRESSURE INCREASED
     Route: 047
  2. DIPIVEFRIN HYDROCHLORIDE [Suspect]
     Route: 065
  3. UNOPROSTONE ISOPROPYL [Suspect]
     Route: 065
  4. ACETAZOLAMIDE [Suspect]
     Route: 048

REACTIONS (1)
  - DRUG INEFFECTIVE [None]
